FAERS Safety Report 13622523 (Version 2)
Quarter: 2018Q3

REPORT INFORMATION
  Report Type: Spontaneous
  Country: DE (occurrence: DE)
  Receive Date: 20170607
  Receipt Date: 20180713
  Transmission Date: 20181010
  Serious: Yes (Hospitalization)
  Sender: FDA-Public Use
  Company Number: DE-TEVA-773541GER

PATIENT
  Age: 48 Year
  Sex: Female

DRUGS (15)
  1. CLOZAPIN [Suspect]
     Active Substance: CLOZAPINE
     Dosage: 450 MILLIGRAM DAILY;
     Route: 048
     Dates: start: 20161130, end: 20161201
  2. CLOZAPIN [Suspect]
     Active Substance: CLOZAPINE
     Indication: PRODUCT USED FOR UNKNOWN INDICATION
     Dosage: 25 ? 400MG
     Route: 048
     Dates: start: 20160825, end: 20160922
  3. SAROTEN [Suspect]
     Active Substance: AMITRIPTYLINE
     Indication: PRODUCT USED FOR UNKNOWN INDICATION
     Route: 048
     Dates: start: 20161020, end: 20161027
  4. CLOZAPIN [Suspect]
     Active Substance: CLOZAPINE
     Dosage: 300 MILLIGRAM DAILY;
     Route: 048
     Dates: start: 20161204
  5. SAROTEN RETARD [Suspect]
     Active Substance: AMITRIPTYLINE
     Indication: PRODUCT USED FOR UNKNOWN INDICATION
     Route: 048
     Dates: start: 20161109
  6. CLOZAPIN [Suspect]
     Active Substance: CLOZAPINE
     Dosage: 425 MILLIGRAM DAILY;
     Route: 048
     Dates: start: 20160923, end: 20160930
  7. CLOZAPIN [Suspect]
     Active Substance: CLOZAPINE
     Dosage: 400 MILLIGRAM DAILY;
     Route: 048
     Dates: start: 20161204
  8. CLOZAPIN [Suspect]
     Active Substance: CLOZAPINE
     Dosage: 150 MILLIGRAM DAILY;
     Route: 048
     Dates: start: 20161205, end: 20161206
  9. SERTRALINE [Suspect]
     Active Substance: SERTRALINE HYDROCHLORIDE
     Indication: PRODUCT USED FOR UNKNOWN INDICATION
     Dosage: 50 MILLIGRAM DAILY;
     Route: 048
     Dates: start: 20161028, end: 20161030
  10. SAROTEN [Suspect]
     Active Substance: AMITRIPTYLINE
     Dosage: 50 MILLIGRAM DAILY;
     Route: 048
     Dates: start: 20161028, end: 20161103
  11. SERTRALINE [Suspect]
     Active Substance: SERTRALINE HYDROCHLORIDE
     Dosage: 100 MILLIGRAM DAILY;
     Route: 048
     Dates: start: 20161031, end: 20161111
  12. CLOZAPIN [Suspect]
     Active Substance: CLOZAPINE
     Dosage: 500 MILLIGRAM DAILY;
     Route: 048
     Dates: start: 20161001, end: 20161129
  13. CLOZAPIN [Suspect]
     Active Substance: CLOZAPINE
     Dosage: 350 MILLIGRAM DAILY;
     Route: 048
     Dates: start: 20161203
  14. SAROTEN [Suspect]
     Active Substance: AMITRIPTYLINE
     Dosage: 75 MILLIGRAM DAILY;
     Route: 048
     Dates: start: 20161104, end: 20161108
  15. PANTOZOL [Concomitant]
     Active Substance: PANTOPRAZOLE SODIUM
     Indication: PRODUCT USED FOR UNKNOWN INDICATION
     Dosage: 20 MILLIGRAM DAILY;
     Route: 048
     Dates: start: 20160922

REACTIONS (3)
  - Myoclonus [Recovered/Resolved]
  - Dysphemia [Recovered/Resolved]
  - Salivary hypersecretion [Recovered/Resolved]

NARRATIVE: CASE EVENT DATE: 20160922
